FAERS Safety Report 23742087 (Version 1)
Quarter: 2024Q2

REPORT INFORMATION
  Report Type: Spontaneous
  Country: NL (occurrence: NL)
  Receive Date: 20240415
  Receipt Date: 20240415
  Transmission Date: 20240716
  Serious: Yes (Life-Threatening, Hospitalization, Other)
  Sender: FDA-Public Use
  Company Number: None

PATIENT
  Age: 59 Year
  Sex: Female
  Weight: 81 kg

DRUGS (5)
  1. ATORVASTATIN [Suspect]
     Active Substance: ATORVASTATIN
     Indication: Hypercholesterolaemia
     Dosage: TABLET 20 MG, 1X PER DAY 1 PIECE
     Dates: start: 20231030, end: 20240108
  2. NITROFURANTOIN [Concomitant]
     Active Substance: NITROFURANTOIN
     Dosage: CAPSULE MGA 100 MG, MODIFIED-RELEASE CAPSULE, 100 MG (MILLIGRAM)
  3. ESOMEPRAZOLE [Concomitant]
     Active Substance: ESOMEPRAZOLE
     Dosage: TABLET MSR 20 MG,  20 MG (MILLIGRAM)
  4. Beclometasone, Formoterol [Concomitant]
     Dosage: AEROSOL 100/6 UG/DO, 100/6 MCG/DOSE (MICROGRAMS PER DOSE)
  5. CALCIUM CARBONATE\CHOLECALCIFEROL [Concomitant]
     Active Substance: CALCIUM CARBONATE\CHOLECALCIFEROL
     Dosage: 1.25 G/800 IU (500 MG CA),  500 MG/800 IU ORANGE

REACTIONS (5)
  - Necrotising myositis [Recovering/Resolving]
  - Polymyositis [Recovering/Resolving]
  - Rhabdomyolysis [Recovering/Resolving]
  - Hepatitis [Recovering/Resolving]
  - Labelled drug-food interaction issue [Recovering/Resolving]
